FAERS Safety Report 8889372 (Version 1)
Quarter: 2012Q4

REPORT INFORMATION
  Report Type: 
  Country: US (occurrence: None)
  Receive Date: 20121101
  Receipt Date: 20121101
  Transmission Date: 20130627
  Serious: No
  Sender: FDA-Public Use
  Company Number: None

PATIENT
  Age: 65 Year
  Sex: Male
  Weight: 80.29 kg

DRUGS (2)
  1. TAMSULOSIN [Suspect]
     Indication: BPH
     Dosage: tamsulosin 0.4 mg daily oral
     Route: 048
     Dates: start: 20120901, end: 20120928
  2. TAMSULOSIN [Suspect]
     Indication: BLADDER OUTLET OBSTRUCTION
     Dosage: tamsulosin 0.4 mg daily oral
     Route: 048
     Dates: start: 20120901, end: 20120928

REACTIONS (3)
  - Product substitution issue [None]
  - Drug ineffective [None]
  - Urinary tract obstruction [None]
